FAERS Safety Report 4651135-X (Version None)
Quarter: 2005Q2

REPORT INFORMATION
  Report Type: 
  Country: None (occurrence: None)
  Receive Date: 20050503
  Receipt Date: 20050425
  Transmission Date: 20051028
  Serious: Yes (Other)
  Sender: FDA-Public Use
  Company Number: GB-JNJFOC-20050403704

PATIENT
  Sex: Male
  Weight: 84 kg

DRUGS (2)
  1. RISPERDAL CONSTA [Suspect]
     Indication: SCHIZOPHRENIA
     Route: 030
  2. RISPERIDONE [Concomitant]
     Indication: SCHIZOPHRENIA

REACTIONS (2)
  - HYPERTENSION [None]
  - NEUTROPENIA [None]
